FAERS Safety Report 13985686 (Version 2)
Quarter: 2017Q4

REPORT INFORMATION
  Report Type: Spontaneous
  Country: US (occurrence: US)
  Receive Date: 20170919
  Receipt Date: 20171002
  Transmission Date: 20180321
  Serious: Yes (Death, Other)
  Sender: FDA-Public Use
  Company Number: US-AMGEN-USASP2017140375

PATIENT
  Age: 64 Year
  Sex: Female

DRUGS (1)
  1. NEULASTA [Suspect]
     Active Substance: PEGFILGRASTIM
     Indication: NEUTROPENIA
     Dosage: 6 MG, AFTER CHEMO
     Route: 058
     Dates: start: 20170908, end: 20170908

REACTIONS (10)
  - Dizziness [Unknown]
  - Mobility decreased [Unknown]
  - Pulmonary haemorrhage [Unknown]
  - Swelling [Unknown]
  - Dyspnoea [Unknown]
  - Asthenia [Unknown]
  - White blood cell count abnormal [Unknown]
  - Peripheral swelling [Unknown]
  - Condition aggravated [Unknown]
  - Death [Fatal]

NARRATIVE: CASE EVENT DATE: 20170910
